FAERS Safety Report 11123601 (Version 2)
Quarter: 2015Q2

REPORT INFORMATION
  Report Type: Spontaneous
  Country: LT (occurrence: LT)
  Receive Date: 20150519
  Receipt Date: 20150611
  Transmission Date: 20150821
  Serious: Yes (Other)
  Sender: FDA-Public Use
  Company Number: LT-ALLERGAN-1509245US

PATIENT
  Age: 82 Year
  Sex: Female

DRUGS (3)
  1. AZARGA [Concomitant]
     Active Substance: BRINZOLAMIDE\TIMOLOL MALEATE
     Indication: PRODUCT USED FOR UNKNOWN INDICATION
  2. LUMIGAN [Suspect]
     Active Substance: BIMATOPROST
     Indication: INTRAOCULAR PRESSURE INCREASED
     Dosage: ONCE DAILY
     Route: 047
     Dates: start: 201409, end: 20150407
  3. LUXFEN [Concomitant]
     Active Substance: BRIMONIDINE TARTRATE
     Indication: PRODUCT USED FOR UNKNOWN INDICATION

REACTIONS (2)
  - Intraocular pressure increased [Unknown]
  - Retinal haemorrhage [Unknown]

NARRATIVE: CASE EVENT DATE: 20150309
